FAERS Safety Report 8180233-1 (Version None)
Quarter: 2012Q1

REPORT INFORMATION
  Report Type: 
  Country: None (occurrence: None)
  Receive Date: 20120215
  Receipt Date: 20111215
  Transmission Date: 20120608
  Serious: Yes (Other)
  Sender: FDA-Public Use
  Company Number: 2012031088

PATIENT
  Age: 23 Year
  Sex: Male
  Weight: 48.5349 kg

DRUGS (9)
  1. TOBRAMYCIN [Concomitant]
  2. OXYGEN (OXYGEN) [Concomitant]
  3. ACETAMINOPHEN [Concomitant]
  4. BANZEL (RUFINAMIDE) [Concomitant]
  5. HIZENTRA [Suspect]
     Indication: IMMUNODEFICIENCY COMMON VARIABLE
     Dosage: 4 G 1X/WEEK, 4G(20 ML) EVERY WEEK, 2 SITES OVER 1-2 HORUS, SUBCUTANEOUS
     Route: 058
     Dates: start: 20111212
  6. ZITHROMAX [Concomitant]
  7. NEURONTIN [Concomitant]
  8. CARDIZEM [Concomitant]
  9. DUONEB (COMBIVENTC [Concomitant]

REACTIONS (2)
  - CONDITION AGGRAVATED [None]
  - CONVULSION [None]
